FAERS Safety Report 20323844 (Version 1)
Quarter: 2022Q1

REPORT INFORMATION
  Report Type: Other
  Country: SK (occurrence: SK)
  Receive Date: 20220111
  Receipt Date: 20220111
  Transmission Date: 20220423
  Serious: Yes (Other)
  Sender: FDA-Public Use
  Company Number: None

PATIENT

DRUGS (3)
  1. VISIPAQUE [Suspect]
     Active Substance: IODIXANOL
     Indication: X-ray with contrast
     Dosage: 1 DF, SINGLE
     Route: 042
  2. VISIPAQUE [Suspect]
     Active Substance: IODIXANOL
     Indication: Product used for unknown indication
  3. FLUDEOXYGLUCOSE [Concomitant]
     Active Substance: FLUDEOXYGLUCOSE
     Indication: Computerised tomogram
     Dosage: 1 DF
     Dates: start: 20210617, end: 20210617

REACTIONS (11)
  - Multiple organ dysfunction syndrome [Recovering/Resolving]
  - Anaphylactic shock [Recovering/Resolving]
  - Loss of consciousness [Recovering/Resolving]
  - Tachypnoea [Recovering/Resolving]
  - Wheezing [Recovering/Resolving]
  - Trismus [Recovering/Resolving]
  - Urinary incontinence [Recovering/Resolving]
  - Cyanosis [Recovering/Resolving]
  - Dyspnoea [Recovering/Resolving]
  - Productive cough [Recovering/Resolving]
  - Hypotension [Recovering/Resolving]

NARRATIVE: CASE EVENT DATE: 20210617
